FAERS Safety Report 25575638 (Version 2)
Quarter: 2025Q3

REPORT INFORMATION
  Report Type: Spontaneous
  Country: BR (occurrence: BR)
  Receive Date: 20250718
  Receipt Date: 20250819
  Transmission Date: 20251020
  Serious: Yes (Other)
  Sender: ABBVIE
  Company Number: BR-ABBOTT-2025A-1400847

PATIENT
  Sex: Male
  Weight: 85 kg

DRUGS (1)
  1. DEPAKOTE [Suspect]
     Active Substance: DIVALPROEX SODIUM
     Indication: Epilepsy
     Dosage: FORM STRENGTH: 500 MG, 3 TABLETS A DAY, ENDS UP USING 1 BOX OF MEDICINE EVERY 20 DAYS
     Route: 048

REACTIONS (10)
  - Seizure [Not Recovered/Not Resolved]
  - Hand fracture [Unknown]
  - Craniofacial fracture [Unknown]
  - Injury [Unknown]
  - Nasal operation [Unknown]
  - Fall [Unknown]
  - Adenoidectomy [Unknown]
  - Limb operation [Unknown]
  - Product use issue [Unknown]
  - Surgery [Unknown]
